FAERS Safety Report 25763852 (Version 1)
Quarter: 2025Q3

REPORT INFORMATION
  Report Type: Spontaneous
  Country: US (occurrence: US)
  Receive Date: 20250905
  Receipt Date: 20250905
  Transmission Date: 20251020
  Serious: No
  Sender: DOMPE FARMACEUTICI
  Company Number: US-FARMAPROD-202412-4098

PATIENT
  Age: 81 Year
  Sex: Female
  Weight: 57.61 kg

DRUGS (13)
  1. OXERVATE [Suspect]
     Active Substance: CENEGERMIN-BKBJ
     Indication: Neurotrophic keratopathy
     Route: 047
     Dates: start: 20241106
  2. OXERVATE [Suspect]
     Active Substance: CENEGERMIN-BKBJ
  3. LOTEMAX [Concomitant]
     Active Substance: LOTEPREDNOL ETABONATE
  4. ZIOPTAN [Concomitant]
     Active Substance: TAFLUPROST
  5. COSOPT PF [Concomitant]
     Active Substance: DORZOLAMIDE HYDROCHLORIDE\TIMOLOL MALEATE
  6. GABAPENTIN [Concomitant]
     Active Substance: GABAPENTIN
  7. OFLOXACIN [Concomitant]
     Active Substance: OFLOXACIN
  8. TRAZODONE HCL [Concomitant]
     Active Substance: TRAZODONE HYDROCHLORIDE
  9. PRAMIPEXOLE DIHYDROCHLORIDE [Concomitant]
     Active Substance: PRAMIPEXOLE DIHYDROCHLORIDE
  10. LOVASTATIN [Concomitant]
     Active Substance: LOVASTATIN
  11. ACETAMINOPHEN [Concomitant]
     Active Substance: ACETAMINOPHEN
  12. PREDNISOLONE ACETATE [Concomitant]
     Active Substance: PREDNISOLONE ACETATE
  13. DICLOFENAC SODIUM [Concomitant]
     Active Substance: DICLOFENAC SODIUM

REACTIONS (4)
  - Eye discharge [Unknown]
  - Eye pain [Not Recovered/Not Resolved]
  - Eye irritation [Unknown]
  - Asthenopia [Unknown]

NARRATIVE: CASE EVENT DATE: 20241206
